FAERS Safety Report 10667233 (Version 1)
Quarter: 2014Q4

REPORT INFORMATION
  Report Type: Report from Study
  Country: US (occurrence: US)
  Receive Date: 20141222
  Receipt Date: 20141222
  Transmission Date: 20150529
  Serious: Yes (Hospitalization, Other)
  Sender: FDA-Public Use
  Company Number: US-ROCHE-1507782

PATIENT
  Sex: Female
  Weight: 85.81 kg

DRUGS (7)
  1. QUESTRAN [Concomitant]
     Active Substance: CHOLESTYRAMINE
     Route: 065
  2. METOPROLOL SUCCINATE. [Concomitant]
     Active Substance: METOPROLOL SUCCINATE
     Route: 065
  3. LEVEMIR [Concomitant]
     Active Substance: INSULIN DETEMIR
     Dosage: AS DIRECTED
     Route: 065
  4. HUMALOG [Concomitant]
     Active Substance: INSULIN LISPRO
     Dosage: AS DIRECTED
     Route: 065
  5. RANIBIZUMAB [Suspect]
     Active Substance: RANIBIZUMAB
     Indication: DIABETIC RETINAL OEDEMA
     Dosage: 6 MG/ML,  0.5 ML/VIAL
     Route: 050
     Dates: start: 20141014
  6. RANIBIZUMAB [Suspect]
     Active Substance: RANIBIZUMAB
     Route: 050
     Dates: start: 20141111
  7. EFFEXOR [Concomitant]
     Active Substance: VENLAFAXINE HYDROCHLORIDE
     Route: 065

REACTIONS (2)
  - Transient ischaemic attack [Unknown]
  - Cerebrovascular accident [Unknown]
